FAERS Safety Report 9330129 (Version 2)
Quarter: 2013Q4

REPORT INFORMATION
  Report Type: Spontaneous
  Country: US (occurrence: US)
  Receive Date: 20130604
  Receipt Date: 20131115
  Transmission Date: 20140711
  Serious: Yes (Hospitalization)
  Sender: FDA-Public Use
  Company Number: US-B.I. PHARMACEUTICALS,INC./RIDGEFIELD-2013-BI-15463BP

PATIENT
  Age: 76 Year
  Sex: Male
  Weight: 81.65 kg

DRUGS (7)
  1. PRADAXA [Suspect]
     Indication: ANTICOAGULANT THERAPY
     Dosage: 300 MG
     Dates: start: 20101213, end: 20120104
  2. PRADAXA [Suspect]
     Indication: ATRIAL FIBRILLATION
  3. DIGOXIN [Concomitant]
     Dosage: 0.125 MG
  4. LOSARTAN [Concomitant]
     Dosage: 50 MG
  5. ALLOPURINOL [Concomitant]
     Dosage: 300 MG
  6. BUMEX [Concomitant]
     Indication: FLUID RETENTION
     Dosage: 1 MG
  7. TRAVATAN [Concomitant]

REACTIONS (3)
  - Gastrointestinal haemorrhage [Unknown]
  - Anaemia [Unknown]
  - Upper gastrointestinal haemorrhage [Unknown]
